FAERS Safety Report 19596671 (Version 1)
Quarter: 2021Q3

REPORT INFORMATION
  Report Type: Spontaneous
  Country: AU (occurrence: AU)
  Receive Date: 20210722
  Receipt Date: 20210722
  Transmission Date: 20211014
  Serious: Yes (Hospitalization, Other)
  Sender: FDA-Public Use
  Company Number: AU-JNJFOC-20210740312

PATIENT
  Age: 34 Year
  Sex: Female
  Weight: 78 kg

DRUGS (5)
  1. FLUOXETINE [Suspect]
     Active Substance: FLUOXETINE HYDROCHLORIDE
     Indication: SCHIZOAFFECTIVE DISORDER
     Route: 065
  2. ZOELY [Concomitant]
     Active Substance: ESTRADIOL\NOMEGESTROL ACETATE
     Indication: MOOD SWINGS
     Route: 048
  3. STATIN [ULINASTATIN] [Concomitant]
  4. RISPERIDONE. [Suspect]
     Active Substance: RISPERIDONE
     Indication: SCHIZOAFFECTIVE DISORDER
     Route: 048
  5. METFORMIN [Concomitant]
     Active Substance: METFORMIN HYDROCHLORIDE

REACTIONS (8)
  - Overweight [Unknown]
  - Hyperprolactinaemia [Recovered/Resolved]
  - Anorgasmia [Unknown]
  - Amenorrhoea [Recovered/Resolved]
  - Galactorrhoea [Recovered/Resolved]
  - Hospitalisation [Unknown]
  - Dyspareunia [Unknown]
  - Loss of libido [Unknown]
